FAERS Safety Report 6044178-5 (Version None)
Quarter: 2009Q1

REPORT INFORMATION
  Report Type: 
  Country: None (occurrence: None)
  Receive Date: 20090120
  Receipt Date: 20090109
  Transmission Date: 20090719
  Serious: Yes (Hospitalization, Other)
  Sender: FDA-Public Use
  Company Number: JP-BAXTER-2008BH014266

PATIENT
  Sex: Male

DRUGS (7)
  1. EXTRANEAL [Suspect]
     Indication: RENAL FAILURE
     Route: 033
     Dates: start: 20070828, end: 20081201
  2. EXTRANEAL [Suspect]
     Route: 033
     Dates: start: 20081223
  3. DIANEAL [Suspect]
     Indication: RENAL FAILURE
     Route: 033
     Dates: start: 20070828, end: 20081201
  4. DIANEAL [Suspect]
     Route: 033
     Dates: start: 20081223
  5. DIANEAL [Suspect]
     Indication: RENAL FAILURE
     Route: 033
     Dates: start: 20070828, end: 20081201
  6. DIANEAL [Suspect]
     Route: 033
     Dates: start: 20081223
  7. INSULIN [Suspect]
     Indication: DIABETES MELLITUS
     Route: 058

REACTIONS (3)
  - HYPOGLYCAEMIA [None]
  - LOSS OF CONSCIOUSNESS [None]
  - OVERDOSE [None]
